FAERS Safety Report 14599088 (Version 1)
Quarter: 2018Q1

REPORT INFORMATION
  Report Type: Spontaneous
  Country: HK (occurrence: HK)
  Receive Date: 20180305
  Receipt Date: 20180305
  Transmission Date: 20180509
  Serious: Yes (Other)
  Sender: FDA-Public Use
  Company Number: HK-NOVAST LABORATORIES, LTD-HK-2018NOV000125

PATIENT
  Age: 79 Year
  Sex: Female

DRUGS (1)
  1. INDOMETHACIN. [Suspect]
     Active Substance: INDOMETHACIN
     Indication: PAIN
     Dosage: UNK

REACTIONS (3)
  - Renal impairment [Unknown]
  - Toxicity to various agents [Unknown]
  - Gastrointestinal haemorrhage [Unknown]
